FAERS Safety Report 12380569 (Version 1)
Quarter: 2016Q2

REPORT INFORMATION
  Report Type: Spontaneous
  Country: US (occurrence: None)
  Receive Date: 20160517
  Receipt Date: 20160517
  Transmission Date: 20160815
  Serious: Yes (Hospitalization, Other)
  Sender: FDA-Public Use
  Company Number: None

PATIENT
  Age: 22 Year
  Sex: Female
  Weight: 63.5 kg

DRUGS (1)
  1. IMPLANON [Suspect]
     Active Substance: ETONOGESTREL
     Dates: start: 20140615, end: 20140615

REACTIONS (3)
  - Ovarian cyst [None]
  - Localised intraabdominal fluid collection [None]
  - Ovarian cyst ruptured [None]

NARRATIVE: CASE EVENT DATE: 20160106
